FAERS Safety Report 25172284 (Version 1)
Quarter: 2025Q2

REPORT INFORMATION
  Report Type: Spontaneous
  Country: ZA (occurrence: ZA)
  Receive Date: 20250408
  Receipt Date: 20250408
  Transmission Date: 20250716
  Serious: Yes (Death)
  Sender: CSL BEHRING
  Company Number: ZA-ROCHE-10000242911

PATIENT
  Age: 80 Year
  Sex: Female

DRUGS (1)
  1. MIRCERA [Suspect]
     Active Substance: METHOXY POLYETHYLENE GLYCOL-EPOETIN BETA
     Indication: Product used for unknown indication
     Route: 065

REACTIONS (18)
  - Death [Fatal]
  - Blood potassium increased [Unknown]
  - Blood urea increased [Unknown]
  - Blood creatinine increased [Unknown]
  - Blood calcium decreased [Unknown]
  - Blood phosphorus increased [Unknown]
  - Blood parathyroid hormone increased [Unknown]
  - Haemoglobin decreased [Unknown]
  - Transferrin decreased [Unknown]
  - Transferrin saturation increased [Unknown]
  - Serum ferritin increased [Unknown]
  - Blood thyroid stimulating hormone increased [Unknown]
  - Hepatitis B surface antibody positive [Unknown]
  - Blood bicarbonate decreased [Unknown]
  - Blood urea increased [Unknown]
  - Blood albumin decreased [Unknown]
  - Blood glucose increased [Unknown]
  - Reticulocyte haemoglobin increased [Unknown]

NARRATIVE: CASE EVENT DATE: 20241031
